FAERS Safety Report 17548678 (Version 1)
Quarter: 2020Q1

REPORT INFORMATION
  Report Type: Spontaneous
  Country: US (occurrence: US)
  Receive Date: 20200317
  Receipt Date: 20200317
  Transmission Date: 20200409
  Serious: No
  Sender: FDA-Public Use
  Company Number: US-ALLERGAN-1930404US

PATIENT
  Sex: Female

DRUGS (17)
  1. LIDOCAINE. [Concomitant]
     Active Substance: LIDOCAINE
     Indication: PAIN
     Dosage: UNK, PRN
     Route: 061
  2. LYRICA [Concomitant]
     Active Substance: PREGABALIN
     Indication: DEGENERATIVE BONE DISEASE
     Dosage: 50 MG 5 TIMES DAILY
     Route: 048
  3. LYRICA [Concomitant]
     Active Substance: PREGABALIN
     Indication: SCIATICA
  4. FISH OIL [Concomitant]
     Active Substance: FISH OIL
     Indication: DEPRESSION
     Dosage: 1 CAPSULE ABOUT 2-3 TIMES WEEKLY
     Route: 048
     Dates: start: 200809
  5. NORCO [Suspect]
     Active Substance: ACETAMINOPHEN\HYDROCODONE BITARTRATE
     Indication: PAIN
     Dosage: BREAKS 1 TABLET INTO 3 PIECES-TAKES 3 PIECES ABOUT EVERY 5 HOURS OVER 24 HOURS
     Route: 048
     Dates: start: 200809
  6. MAGNESIUM [Concomitant]
     Active Substance: MAGNESIUM
     Dosage: UNK
     Dates: start: 200809, end: 201901
  7. IBUPROFEN. [Concomitant]
     Active Substance: IBUPROFEN
     Indication: INFLAMMATION
     Dosage: 600 MG, PRN
     Route: 048
     Dates: start: 200809
  8. VITAMIN D3 [Concomitant]
     Active Substance: CHOLECALCIFEROL
     Indication: DEPRESSION
     Dosage: 2000MG TABLET ABOUT 2-3 TIMES WEEKLY
     Route: 048
     Dates: start: 200809
  9. LYRICA [Concomitant]
     Active Substance: PREGABALIN
     Indication: OSTEOARTHRITIS
     Dosage: 25MG 5 TIMES DAILY
     Route: 048
     Dates: start: 20091215
  10. LITHIUM. [Concomitant]
     Active Substance: LITHIUM
     Indication: DEPRESSION
     Dosage: 300 MG, BID
     Route: 048
  11. LITHIUM. [Concomitant]
     Active Substance: LITHIUM
     Indication: DISSOCIATIVE DISORDER
  12. LITHIUM. [Concomitant]
     Active Substance: LITHIUM
     Indication: BIPOLAR DISORDER
     Dosage: 300 MG, QD
     Route: 048
     Dates: start: 200809
  13. LITHIUM. [Concomitant]
     Active Substance: LITHIUM
     Indication: SUICIDAL IDEATION
  14. CALCIUM WITH VITAMIN D3 [Concomitant]
     Active Substance: CALCIUM CARBONATE\CHOLECALCIFEROL
     Indication: DEPRESSION
     Dosage: ABOUT 2-3 TIMES WEEKLY
     Route: 048
     Dates: start: 200809
  15. LYRICA [Concomitant]
     Active Substance: PREGABALIN
     Indication: RADICULOPATHY
  16. LYRICA [Concomitant]
     Active Substance: PREGABALIN
     Indication: CREPITATIONS
  17. CYCLOBENZAPRINE. [Concomitant]
     Active Substance: CYCLOBENZAPRINE
     Indication: MUSCLE SPASMS
     Dosage: 10 MG, TID
     Route: 048
     Dates: start: 200809

REACTIONS (1)
  - Abdominal discomfort [Unknown]
